FAERS Safety Report 15902604 (Version 3)
Quarter: 2019Q1

REPORT INFORMATION
  Report Type: Report from Study
  Country: US (occurrence: US)
  Receive Date: 20190201
  Receipt Date: 20190222
  Transmission Date: 20190417
  Serious: Yes (Other)
  Sender: FDA-Public Use
  Company Number: US-AMGEN INC.-USASL2019015227

PATIENT
  Sex: Male

DRUGS (1)
  1. AIMOVIG [Suspect]
     Active Substance: ERENUMAB-AOOE
     Indication: MIGRAINE-TRIGGERED SEIZURE
     Dosage: UNK
     Route: 065
     Dates: start: 2018, end: 201901

REACTIONS (1)
  - Migraine-triggered seizure [Unknown]

NARRATIVE: CASE EVENT DATE: 2018
